APPROVED DRUG PRODUCT: PIROXICAM
Active Ingredient: PIROXICAM
Strength: 20MG
Dosage Form/Route: CAPSULE;ORAL
Application: A074043 | Product #002
Applicant: MYLAN PHARMACEUTICALS INC
Approved: Sep 22, 1992 | RLD: No | RS: No | Type: DISCN